FAERS Safety Report 9858618 (Version 1)
Quarter: 2014Q1

REPORT INFORMATION
  Report Type: Spontaneous
  Country: US (occurrence: None)
  Receive Date: 20140129
  Receipt Date: 20140129
  Transmission Date: 20141002
  Serious: Yes (Death)
  Sender: FDA-Public Use
  Company Number: 2014AP000565

PATIENT
  Age: 68 Year
  Sex: Female

DRUGS (5)
  1. AMLODIPINE BESYLATE TABLETS [Suspect]
     Route: 048
  2. METOPROLOL [Concomitant]
     Route: 048
  3. CLONAZEPAM TABLETS, USP [Suspect]
     Route: 048
  4. FENOFIBRATE [Suspect]
     Route: 048
  5. VITAMIN B3 (NIACIN) [Suspect]
     Route: 048

REACTIONS (1)
  - Completed suicide [None]
